FAERS Safety Report 10754049 (Version 2)
Quarter: 2015Q1

REPORT INFORMATION
  Report Type: Spontaneous
  Country: US (occurrence: US)
  Receive Date: 20150202
  Receipt Date: 20150330
  Transmission Date: 20150721
  Serious: No
  Sender: FDA-Public Use
  Company Number: US-LEO PHARMA-232003

PATIENT
  Age: 45 Year
  Sex: Female

DRUGS (1)
  1. PICATO [Suspect]
     Active Substance: INGENOL MEBUTATE
     Indication: ACTINIC KERATOSIS
     Route: 061
     Dates: start: 20141227, end: 20141228

REACTIONS (6)
  - Lip swelling [Recovered/Resolved]
  - Application site exfoliation [Not Recovered/Not Resolved]
  - Incorrect drug administration duration [Unknown]
  - Application site vesicles [Recovered/Resolved]
  - Drug administered at inappropriate site [Unknown]
  - Application site pain [Recovered/Resolved]

NARRATIVE: CASE EVENT DATE: 20141229
